FAERS Safety Report 10145284 (Version 1)
Quarter: 2014Q2

REPORT INFORMATION
  Report Type: Spontaneous
  Country: US (occurrence: US)
  Receive Date: 20140501
  Receipt Date: 20140501
  Transmission Date: 20141212
  Serious: No
  Sender: FDA-Public Use
  Company Number: US-BIOGENIDEC-2014BI037479

PATIENT
  Age: 61 Year
  Sex: Female

DRUGS (10)
  1. TECFIDERA [Suspect]
     Indication: MULTIPLE SCLEROSIS
     Route: 048
     Dates: start: 20140402, end: 20140408
  2. TECFIDERA [Suspect]
     Indication: MULTIPLE SCLEROSIS
     Route: 048
     Dates: start: 20140409
  3. BACLOFEN [Concomitant]
  4. VESLCARE [Concomitant]
  5. CARDIAZEM [Concomitant]
  6. OMEPRAZOL [Concomitant]
  7. AMYTEPTALINE [Concomitant]
  8. MIRAPEX [Concomitant]
  9. MODAFINIL [Concomitant]
  10. VITAMIN D [Concomitant]

REACTIONS (2)
  - Constipation [Not Recovered/Not Resolved]
  - Flushing [Recovered/Resolved]
